FAERS Safety Report 6653348-4 (Version None)
Quarter: 2010Q1

REPORT INFORMATION
  Report Type: 
  Country: None (occurrence: None)
  Receive Date: 20100326
  Receipt Date: 20100312
  Transmission Date: 20100710
  Serious: Yes (Other)
  Sender: FDA-Public Use
  Company Number: PHEH2010US03122

PATIENT
  Sex: Female

DRUGS (3)
  1. EXFORGE HCT [Suspect]
     Dosage: AMLO5/VAL160/HCT12.5MG, UNK
  2. CENTRUM SILVER [Concomitant]
  3. VYTORIN [Concomitant]

REACTIONS (11)
  - BLOOD PRESSURE INCREASED [None]
  - DIARRHOEA [None]
  - DYSPEPSIA [None]
  - DYSPHAGIA [None]
  - GASTROINTESTINAL DISORDER [None]
  - GINGIVAL ABSCESS [None]
  - GINGIVAL BLEEDING [None]
  - GINGIVAL SWELLING [None]
  - KNEE OPERATION [None]
  - SWOLLEN TONGUE [None]
  - TOOTH EXTRACTION [None]
